FAERS Safety Report 20538745 (Version 1)
Quarter: 2022Q1

REPORT INFORMATION
  Report Type: Spontaneous
  Country: JP (occurrence: JP)
  Receive Date: 20220302
  Receipt Date: 20220302
  Transmission Date: 20220423
  Serious: Yes (Hospitalization, Other)
  Sender: FDA-Public Use
  Company Number: JP-JNJFOC-20210913325

PATIENT
  Age: 85 Year
  Sex: Male

DRUGS (10)
  1. ZYTIGA [Suspect]
     Active Substance: ABIRATERONE ACETATE
     Indication: Prostate cancer
     Route: 048
     Dates: start: 20210820, end: 20210902
  2. DAPRODUSTAT [Suspect]
     Active Substance: DAPRODUSTAT
     Indication: Product used for unknown indication
     Dosage: DOSE UNKNOWN
     Route: 048
  3. TOPIROXOSTAT [Suspect]
     Active Substance: TOPIROXOSTAT
     Indication: Product used for unknown indication
     Dosage: DOSE UNKNOWN
     Route: 048
  4. GLICLAZIDE [Suspect]
     Active Substance: GLICLAZIDE
     Indication: Product used for unknown indication
     Dosage: DOSE UNKNOWN
     Route: 048
  5. ONGLYZA [Suspect]
     Active Substance: SAXAGLIPTIN HYDROCHLORIDE
     Indication: Product used for unknown indication
     Dosage: DOSE UNKNOWN
     Route: 048
  6. AZOSEMIDE [Suspect]
     Active Substance: AZOSEMIDE
     Indication: Product used for unknown indication
     Dosage: DOSE UNKNOWN
     Route: 048
  7. PREDNISOLONE [Suspect]
     Active Substance: PREDNISOLONE
     Indication: Product used for unknown indication
     Route: 048
     Dates: start: 20210820, end: 20210902
  8. REBAMIPIDE [Suspect]
     Active Substance: REBAMIPIDE
     Indication: Product used for unknown indication
     Dosage: DOSE UNKNOWN
     Route: 065
  9. RUPAFIN [Suspect]
     Active Substance: RUPATADINE FUMARATE
     Indication: Product used for unknown indication
     Dosage: DOSE UNKNOWN
     Route: 048
  10. AMLODIPINE BESYLATE [Suspect]
     Active Substance: AMLODIPINE BESYLATE
     Indication: Product used for unknown indication
     Dosage: DOSE UNKNOWN
     Route: 065

REACTIONS (1)
  - Platelet count decreased [Recovered/Resolved]

NARRATIVE: CASE EVENT DATE: 20210902
